FAERS Safety Report 5620738-8 (Version None)
Quarter: 2008Q1

REPORT INFORMATION
  Report Type: 
  Country: None (occurrence: None)
  Receive Date: 20080208
  Receipt Date: 20080131
  Transmission Date: 20080703
  Serious: Yes (Hospitalization)
  Sender: FDA-Public Use
  Company Number: US-ABBOTT-08P-163-0436094-00

PATIENT
  Sex: Female
  Weight: 65.376 kg

DRUGS (1)
  1. HUMIRA [Suspect]
     Indication: RHEUMATOID ARTHRITIS
     Route: 058
     Dates: start: 20070401, end: 20071101

REACTIONS (5)
  - CHEST DISCOMFORT [None]
  - EROSIVE OESOPHAGITIS [None]
  - HAEMATOCRIT DECREASED [None]
  - HAEMORRHAGE [None]
  - PAINFUL RESPIRATION [None]
